FAERS Safety Report 13008205 (Version 1)
Quarter: 2016Q4

REPORT INFORMATION
  Report Type: Spontaneous
  Country: US (occurrence: US)
  Receive Date: 20161208
  Receipt Date: 20161208
  Transmission Date: 20170207
  Serious: Yes (Other)
  Sender: FDA-Public Use
  Company Number: US-TEVA-652785USA

PATIENT
  Age: 72 Year
  Sex: Female

DRUGS (4)
  1. AMIODARONE MADE BY ZYDUS [Concomitant]
  2. BABY ASPIRIN [Concomitant]
     Active Substance: ASPIRIN
     Route: 065
  3. ARMOUR THYROID [Concomitant]
     Active Substance: THYROID, PORCINE
  4. AMIODARONE [Suspect]
     Active Substance: AMIODARONE
     Dosage: 1-2 TABLETS TWICE DAILY
     Route: 065
     Dates: start: 20160305

REACTIONS (2)
  - Protein bound iodine increased [Unknown]
  - Psychomotor hyperactivity [Recovering/Resolving]

NARRATIVE: CASE EVENT DATE: 20160404
